FAERS Safety Report 20007306 (Version 2)
Quarter: 2021Q4

REPORT INFORMATION
  Report Type: Spontaneous
  Country: JP (occurrence: JP)
  Receive Date: 20211028
  Receipt Date: 20211229
  Transmission Date: 20220303
  Serious: Yes (Other)
  Sender: FDA-Public Use
  Company Number: JP-OTSUKA-2021_036941

PATIENT
  Age: 51 Year
  Sex: Male
  Weight: 83 kg

DRUGS (1)
  1. SAMSCA [Suspect]
     Active Substance: TOLVAPTAN
     Indication: Cardiac failure chronic
     Dosage: 7.5 MG, QD
     Route: 048
     Dates: start: 20210827, end: 20210831

REACTIONS (3)
  - Hepatic function abnormal [Recovered/Resolved]
  - Weight decreased [Unknown]
  - Thirst [Unknown]

NARRATIVE: CASE EVENT DATE: 20210827
